FAERS Safety Report 8177193-6 (Version None)
Quarter: 2012Q1

REPORT INFORMATION
  Report Type: 
  Country: None (occurrence: None)
  Receive Date: 20120124
  Receipt Date: 20111220
  Transmission Date: 20120608
  Serious: No
  Sender: FDA-Public Use
  Company Number: US-007189

PATIENT
  Age: 59 Year
  Sex: Male
  Weight: 94.3482 kg

DRUGS (1)
  1. DEGARELIX 80 MG [Suspect]
     Indication: PROSTATE CANCER
     Dosage: (80 MG 1X/MONTH SUBCUTANEOUS)
     Route: 058
     Dates: start: 20110708, end: 20111209

REACTIONS (2)
  - BLOOD TESTOSTERONE INCREASED [None]
  - INAPPROPRIATE SCHEDULE OF DRUG ADMINISTRATION [None]
